FAERS Safety Report 4288833-6 (Version None)
Quarter: 2004Q1

REPORT INFORMATION
  Report Type: 
  Country: None (occurrence: None)
  Receive Date: 20040204
  Receipt Date: 20040202
  Transmission Date: 20041129
  Serious: Yes (Death, Life-Threatening)
  Sender: FDA-Public Use
  Company Number: 2003190345JP

PATIENT
  Age: 73 Year
  Sex: Male
  Weight: 43.6 kg

DRUGS (27)
  1. LINEZOLID (LINEZOLID) SOLUTION, STERILE [Suspect]
     Indication: SEPSIS
     Dosage: SEE IMAGE
     Route: 042
     Dates: start: 20031201, end: 20031201
  2. LINEZOLID (LINEZOLID) SOLUTION, STERILE [Suspect]
     Indication: SEPSIS
     Dosage: SEE IMAGE
     Route: 042
     Dates: start: 20031202, end: 20031211
  3. PN TWIN (CARBOHYDRATES NOS) [Concomitant]
  4. MINERALS NOS [Concomitant]
  5. NEOLAMIN MULTI (VITAMINS NOS) [Concomitant]
  6. CONCLYTE-NA [Concomitant]
  7. KCL-ZYMA [Concomitant]
  8. ASPARA K (ASPARTATE POTASSIUM) [Concomitant]
  9. HUMULIN R [Concomitant]
  10. STRONG NEO-MINOPHAGEN C (CYSTEINE, AMINOACETIC ACID, GLYCYRRHIZIC ACID [Concomitant]
  11. LAC B (LACTOBACILLUS BIFIDUS, LYOPHILIZED) [Concomitant]
  12. ULCERLMIN [Concomitant]
  13. MUCODYNE [Concomitant]
  14. ZANTAC [Concomitant]
  15. THEO-DUR [Concomitant]
  16. PREDNISOLONE [Concomitant]
  17. INDACIN SUPPOSITORY [Concomitant]
  18. HUMULIN REGULAR (INSULIN HUMAN) [Concomitant]
  19. ALBUMIN ^KABI^ [Concomitant]
  20. OMEGACIN [Concomitant]
  21. DORMICUM ^ROCHE^ (MIDAZOLAM MALEATE) [Concomitant]
  22. PN TWIN (CARBOHYDRATES NOS) [Concomitant]
  23. ADONA (CARBAZOCHROME SODIUM SULFONATE) [Concomitant]
  24. RIKAVERIN [Concomitant]
  25. LASIX [Concomitant]
  26. LACTEC G [Concomitant]
  27. SULPYRINE (METAMIZOLE SODIUM) [Concomitant]

REACTIONS (9)
  - CARDIAC ARREST [None]
  - CONDITION AGGRAVATED [None]
  - INTERSTITIAL LUNG DISEASE [None]
  - OXYGEN SATURATION INCREASED [None]
  - PNEUMONIA [None]
  - PROTEUS INFECTION [None]
  - PSEUDOMONAS INFECTION [None]
  - RESPIRATORY DISORDER [None]
  - WHITE BLOOD CELL COUNT INCREASED [None]
